FAERS Safety Report 5790245-0 (Version None)
Quarter: 2008Q2

REPORT INFORMATION
  Report Type: 
  Country: None (occurrence: None)
  Receive Date: 20080618
  Receipt Date: 20080326
  Transmission Date: 20081010
  Serious: Yes (Other)
  Sender: FDA-Public Use
  Company Number: 200810702US

PATIENT
  Age: 65 Year
  Sex: Male
  Weight: 74.99 kg

DRUGS (3)
  1. LANTUS [Suspect]
     Dosage: 12 U QPM
     Dates: start: 20070901
  2. NOVOLOG [Concomitant]
  3. NOVOLOG [Concomitant]

REACTIONS (2)
  - BLOOD GLUCOSE INCREASED [None]
  - HYPOGLYCAEMIA [None]
